FAERS Safety Report 10071752 (Version 1)
Quarter: 2014Q2

REPORT INFORMATION
  Report Type: Report from Study
  Country: CA (occurrence: CA)
  Receive Date: 20140411
  Receipt Date: 20140411
  Transmission Date: 20141212
  Serious: Yes (Other)
  Sender: FDA-Public Use
  Company Number: CA-JNJFOC-20140404919

PATIENT
  Age: 51 Year
  Sex: Female

DRUGS (4)
  1. REMICADE [Suspect]
     Indication: CROHN^S DISEASE
     Route: 042
     Dates: start: 200201
  2. MATERNA [Concomitant]
     Route: 065
  3. OLMETEC [Concomitant]
     Route: 065
  4. PAXIL [Concomitant]
     Route: 065

REACTIONS (3)
  - Arthroscopy [Recovering/Resolving]
  - Uterine leiomyoma [Unknown]
  - Weight decreased [Unknown]
